FAERS Safety Report 8382580-7 (Version None)
Quarter: 2012Q2

REPORT INFORMATION
  Report Type: 
  Country: None (occurrence: None)
  Receive Date: 20120524
  Receipt Date: 20120514
  Transmission Date: 20120825
  Serious: Yes (Hospitalization)
  Sender: FDA-Public Use
  Company Number: AT-JNJFOC-20120512797

PATIENT
  Age: 81 Year
  Sex: Female

DRUGS (4)
  1. XARELTO [Suspect]
     Indication: ATRIAL FIBRILLATION
     Route: 065
     Dates: start: 20120403
  2. TRAMADOL HYDROCHLORIDE [Concomitant]
  3. AMIODARONE HYDROCHLORIDE [Concomitant]
  4. ASPARTAME [Concomitant]

REACTIONS (1)
  - PERIPHERAL EMBOLISM [None]
